FAERS Safety Report 7907124-2 (Version None)
Quarter: 2011Q4

REPORT INFORMATION
  Report Type: 
  Country: None (occurrence: None)
  Receive Date: 20111110
  Receipt Date: 20110221
  Transmission Date: 20120403
  Serious: Yes (Hospitalization)
  Sender: FDA-Public Use
  Company Number: US-ASTRAZENECA-2011SE04351

PATIENT
  Age: 22303 Day
  Sex: Male
  Weight: 90.7 kg

DRUGS (3)
  1. CRESTOR [Concomitant]
     Route: 048
  2. ASPIRIN [Concomitant]
  3. ZESTRIL [Suspect]
     Indication: HYPERTENSION
     Route: 048
     Dates: start: 20050101, end: 20110123

REACTIONS (2)
  - ORAL DISCOMFORT [None]
  - ANGIOEDEMA [None]
